FAERS Safety Report 12844344 (Version 1)
Quarter: 2016Q4

REPORT INFORMATION
  Report Type: Spontaneous
  Country: ES (occurrence: ES)
  Receive Date: 20161013
  Receipt Date: 20161013
  Transmission Date: 20170207
  Serious: Yes (Death, Disabling)
  Sender: FDA-Public Use
  Company Number: ES-ELI_LILLY_AND_COMPANY-ES201610002904

PATIENT
  Age: 63 Year
  Sex: Male

DRUGS (3)
  1. PEMETREXED [Suspect]
     Active Substance: PEMETREXED
     Indication: LUNG NEOPLASM MALIGNANT
     Dosage: 500 MG/M2, CYCLICAL (21 DAYS)
     Route: 042
     Dates: start: 20141222, end: 20141222
  2. ERLOTINIB [Suspect]
     Active Substance: ERLOTINIB
     Indication: LUNG NEOPLASM MALIGNANT
     Dosage: 150 MG, QD
     Route: 048
     Dates: start: 20141121, end: 20141218
  3. CARBOPLATIN. [Suspect]
     Active Substance: CARBOPLATIN
     Indication: LUNG NEOPLASM MALIGNANT
     Dosage: 5 AUC FOR (21 DAY)
     Route: 042
     Dates: start: 20141222, end: 20141222

REACTIONS (2)
  - Cerebrovascular accident [Fatal]
  - Off label use [Unknown]

NARRATIVE: CASE EVENT DATE: 20141222
